FAERS Safety Report 19475225 (Version 4)
Quarter: 2021Q3

REPORT INFORMATION
  Report Type: Spontaneous
  Country: GB (occurrence: GB)
  Receive Date: 20210630
  Receipt Date: 20210816
  Transmission Date: 20211014
  Serious: Yes (Hospitalization, Disabling, Other)
  Sender: FDA-Public Use
  Company Number: GB-AUROBINDO-AUR-APL-2021-026962

PATIENT
  Age: 70 Year
  Sex: Male

DRUGS (17)
  1. CLOPIDOGREL [Suspect]
     Active Substance: CLOPIDOGREL BISULFATE
     Indication: CHEST PAIN
     Dosage: 300 MILLIGRAM, ONCE A DAY
     Route: 048
  2. CIPROFLOXACIN. [Interacting]
     Active Substance: CIPROFLOXACIN
     Indication: ANTIBIOTIC THERAPY
  3. MEROPENEM POWDER FOR SOLUTION FOR INFUSION [Interacting]
     Active Substance: MEROPENEM
     Indication: CELLULITIS
     Dosage: 4 GRAM, ONCE A DAY(2 G, 2X PER DAY)
     Route: 042
  4. ACETYLSALICYLIC ACID [Suspect]
     Active Substance: ASPIRIN
     Indication: ANTIPLATELET THERAPY
     Dosage: 75 MILLIGRAM, ONCE A DAY
     Route: 065
  5. ASPIRIN. [Suspect]
     Active Substance: ASPIRIN
     Indication: ANTIPLATELET THERAPY
     Dosage: 300 MILLIGRAM, ONCE A DAY(PATIENT RECEIVED 300MG ON ADMITTANCE AND STARTED ON A 75MG/DAY REGIME.)
     Route: 065
  6. ASPIRIN. [Suspect]
     Active Substance: ASPIRIN
     Dosage: 75 MILLIGRAM, ONCE A DAY
     Route: 065
  7. ERYTHROMYCIN. [Interacting]
     Active Substance: ERYTHROMYCIN
     Indication: CELLULITIS
     Dosage: 1000 MILLIGRAM, ONCE A DAY(250 MG, 4X PER DAY)
     Route: 048
  8. TEICOPLANIN [Interacting]
     Active Substance: TEICOPLANIN
     Indication: CELLULITIS
     Dosage: 400 MILLIGRAM, ONCE A DAY(400 MG, 1X PER DAYU)
     Route: 030
  9. TEICOPLANIN [Interacting]
     Active Substance: TEICOPLANIN
     Indication: ANTIBIOTIC THERAPY
  10. ERYTHROMYCIN. [Interacting]
     Active Substance: ERYTHROMYCIN
     Indication: ANTIBIOTIC THERAPY
  11. METRONIDAZOLE TABLET [Interacting]
     Active Substance: METRONIDAZOLE
     Indication: CHALAZION
     Dosage: 1200 MILLIGRAM, ONCE A DAY (400 MG, 3X PER DAY)
     Route: 048
  12. WARFARIN [Interacting]
     Active Substance: WARFARIN
     Indication: FACTOR V DEFICIENCY
     Dosage: UNK (WARFARIN THERAPY END FLAG: DRUG NO LONGER ADMINISTERED)
     Route: 065
  13. VITAMIN K [Concomitant]
     Active Substance: PHYTONADIONE
     Indication: PRODUCT USED FOR UNKNOWN INDICATION
     Dosage: UNK
     Route: 065
  14. CLOPIDOGREL [Interacting]
     Active Substance: CLOPIDOGREL BISULFATE
     Indication: ANTIPLATELET THERAPY
     Dosage: 75 MILLIGRAM, ONCE A DAY
     Route: 048
  15. CIPROFLOXACIN. [Interacting]
     Active Substance: CIPROFLOXACIN
     Indication: CHALAZION
     Dosage: 1500 MILLIGRAM, ONCE A DAY (2X PER DAY)
     Route: 048
  16. WARFARIN [Interacting]
     Active Substance: WARFARIN
     Indication: PULMONARY EMBOLISM
     Dosage: UNK (NI)
     Route: 065
  17. WARFARIN [Interacting]
     Active Substance: WARFARIN
     Dosage: UNK PREFERRED PRODUCT DESCRIPTION: WARFARIN THERAPY END FLAG: DRUG NO LONGER ADMINISTERED
     Route: 065

REACTIONS (12)
  - Intraocular pressure increased [Not Recovered/Not Resolved]
  - Visual impairment [Unknown]
  - Pyrexia [Unknown]
  - Hyphaema [Recovered/Resolved with Sequelae]
  - Potentiating drug interaction [Recovered/Resolved with Sequelae]
  - Headache [Unknown]
  - Eye pain [Recovered/Resolved with Sequelae]
  - Decreased appetite [Unknown]
  - Coagulation time prolonged [Recovered/Resolved]
  - Drug interaction [Recovered/Resolved]
  - Nausea [Unknown]
  - International normalised ratio increased [Recovered/Resolved]
